FAERS Safety Report 18793710 (Version 1)
Quarter: 2021Q1

REPORT INFORMATION
  Report Type: Spontaneous
  Country: IE (occurrence: IE)
  Receive Date: 20210127
  Receipt Date: 20210127
  Transmission Date: 20210419
  Serious: Yes (Hospitalization, Other)
  Sender: FDA-Public Use
  Company Number: IE-AMGEN-IRLSP2021009716

PATIENT
  Age: 54 Year
  Sex: Female

DRUGS (1)
  1. CINACALCET HCL [Suspect]
     Active Substance: CINACALCET HYDROCHLORIDE
     Indication: HYPERPARATHYROIDISM SECONDARY
     Dosage: UNK
     Route: 065

REACTIONS (3)
  - Hypopituitarism [Recovering/Resolving]
  - Parathyroid tumour benign [Unknown]
  - Pituitary tumour benign [Recovering/Resolving]
